FAERS Safety Report 10157268 (Version 1)
Quarter: 2014Q2

REPORT INFORMATION
  Report Type: Report from Study
  Country: US (occurrence: US)
  Receive Date: 20140507
  Receipt Date: 20140507
  Transmission Date: 20141212
  Serious: Yes (Other)
  Sender: FDA-Public Use
  Company Number: US-ABBVIE-14P-163-1231128-00

PATIENT
  Age: 60 Year
  Sex: Female
  Weight: 56.3 kg

DRUGS (11)
  1. HUMIRA [Suspect]
     Indication: RHEUMATOID ARTHRITIS
     Route: 058
     Dates: start: 2009, end: 201402
  2. HUMIRA [Suspect]
     Route: 058
     Dates: start: 201403
  3. HYDROXYCHLOROQUINE [Concomitant]
     Indication: RHEUMATOID ARTHRITIS
  4. FUROSEMIDE [Concomitant]
     Indication: PRODUCT USED FOR UNKNOWN INDICATION
  5. VITAMIN D [Concomitant]
     Indication: VITAMIN D DEFICIENCY
  6. ODANSETRON [Concomitant]
     Indication: NAUSEA
  7. CYMBALTA [Concomitant]
     Indication: DEPRESSION
  8. ABILIFY [Concomitant]
     Indication: DEPRESSION
  9. MIRILAX [Concomitant]
     Indication: CONSTIPATION
     Dates: start: 201402
  10. PERCOCET [Concomitant]
     Indication: PROCEDURAL PAIN
  11. PREDNISONE [Concomitant]
     Indication: RHEUMATOID ARTHRITIS

REACTIONS (4)
  - Osteoarthritis [Not Recovered/Not Resolved]
  - Rheumatoid arthritis [Not Recovered/Not Resolved]
  - Arthralgia [Recovering/Resolving]
  - Constipation [Not Recovered/Not Resolved]
